FAERS Safety Report 5306576-4 (Version None)
Quarter: 2007Q2

REPORT INFORMATION
  Report Type: 
  Country: None (occurrence: None)
  Receive Date: 20070424
  Receipt Date: 20070416
  Transmission Date: 20071010
  Serious: Yes (Hospitalization)
  Sender: FDA-Public Use
  Company Number: US-PFIZER INC-2005067944

PATIENT
  Sex: Female
  Weight: 59.4 kg

DRUGS (10)
  1. SUTENT [Suspect]
     Indication: BREAST CANCER METASTATIC
     Route: 048
     Dates: start: 20050210, end: 20050413
  2. ATENOLOL [Concomitant]
     Indication: HYPERTENSION
     Route: 048
  3. ATENOLOL [Concomitant]
     Indication: SINUS TACHYCARDIA
  4. ZOMETA [Concomitant]
     Route: 042
  5. VITAMIN CAP [Concomitant]
     Route: 048
  6. CALCIUM [Concomitant]
     Route: 048
  7. FENTANYL [Concomitant]
     Indication: PAIN
     Route: 062
  8. VICODIN [Concomitant]
     Indication: PAIN
     Route: 048
  9. ZOFRAN [Concomitant]
     Indication: NAUSEA
     Route: 048
  10. MARINOL [Concomitant]
     Indication: APPETITE DISORDER
     Route: 048

REACTIONS (3)
  - HAEMORRHAGE [None]
  - HYPERCALCAEMIA [None]
  - PLEURAL EFFUSION [None]
